FAERS Safety Report 25258422 (Version 4)
Quarter: 2025Q3

REPORT INFORMATION
  Report Type: Report from Study
  Country: US (occurrence: US)
  Receive Date: 20250501
  Receipt Date: 20250831
  Transmission Date: 20251020
  Serious: Yes (Hospitalization)
  Sender: ABBVIE
  Company Number: US-ABBVIE-6259894

PATIENT
  Age: 54 Year
  Sex: Female

DRUGS (4)
  1. RINVOQ [Suspect]
     Active Substance: UPADACITINIB
     Indication: Rheumatoid arthritis
     Dosage: FORM STRENGTH: 15 MILLIGRAM?LAST ADMIN DATE: 2025
     Route: 048
     Dates: start: 20250301
  2. RINVOQ [Suspect]
     Active Substance: UPADACITINIB
     Indication: Rheumatoid arthritis
     Dosage: FORM STRENGTH: 15 MILLIGRAM?START DATE: 2025?END DATE: 2025
     Route: 048
  3. RINVOQ [Suspect]
     Active Substance: UPADACITINIB
     Indication: Rheumatoid arthritis
     Dosage: FORM STRENGTH: 15 MILLIGRAM
     Route: 048
     Dates: start: 202506
  4. RINVOQ [Suspect]
     Active Substance: UPADACITINIB
     Indication: Rheumatoid arthritis
     Dosage: FORM STRENGTH: 15 MILLIGRAM?RESUMED IN AUG 2025 5 DAYS BEFORE TIME OF REPORTING.
     Route: 048
     Dates: start: 20250817

REACTIONS (8)
  - Gastritis [Unknown]
  - Drug ineffective [Unknown]
  - Pain [Unknown]
  - Musculoskeletal stiffness [Unknown]
  - Gastrooesophageal reflux disease [Unknown]
  - Rheumatoid arthritis [Recovering/Resolving]
  - Palindromic rheumatism [Unknown]
  - Hypoaesthesia [Recovering/Resolving]

NARRATIVE: CASE EVENT DATE: 20250101
